FAERS Safety Report 20236571 (Version 1)
Quarter: 2021Q4

REPORT INFORMATION
  Report Type: Spontaneous
  Country: US (occurrence: None)
  Receive Date: 20211228
  Receipt Date: 20211228
  Transmission Date: 20220303
  Serious: No
  Sender: FDA-Public Use
  Company Number: 2021A867356

PATIENT
  Sex: Male
  Weight: 108.9 kg

DRUGS (1)
  1. BREZTRI [Suspect]
     Active Substance: BUDESONIDE\FORMOTEROL\GLYCOPYRROLATE
     Indication: Chronic obstructive pulmonary disease
     Dosage: BREZTRI 160/9/4.8 MCG TWO RESPIRATORY INHALATIONS TWICE A DAY
     Route: 055

REACTIONS (15)
  - Illness [Unknown]
  - Weight decreased [Unknown]
  - Sputum discoloured [Unknown]
  - Dyspnoea [Unknown]
  - Hypoaesthesia [Unknown]
  - Intentional device misuse [Unknown]
  - Wrong technique in device usage process [Unknown]
  - Malaise [Unknown]
  - Cough [Unknown]
  - Pain in extremity [Unknown]
  - Influenza like illness [Unknown]
  - Hypophagia [Unknown]
  - Decreased appetite [Unknown]
  - Nerve compression [Unknown]
  - Device delivery system issue [Unknown]
